FAERS Safety Report 6344134-3 (Version None)
Quarter: 2009Q3

REPORT INFORMATION
  Report Type: 
  Country: None (occurrence: None)
  Receive Date: 20090908
  Receipt Date: 20090831
  Transmission Date: 20100115
  Serious: Yes (Other)
  Sender: FDA-Public Use
  Company Number: US-ALLERGAN-0909995US

PATIENT
  Age: 56 Year
  Sex: Female
  Weight: 68.934 kg

DRUGS (5)
  1. BOTOX [Suspect]
     Indication: TORTICOLLIS
     Dosage: 300 UNITS, SINGLE
     Route: 030
     Dates: start: 20090630, end: 20090630
  2. BOTOX [Suspect]
     Dosage: 300 UNK, UNK
     Route: 030
     Dates: start: 20090324, end: 20090324
  3. KLONOPIN [Concomitant]
     Indication: MUSCLE SPASMS
     Dosage: 0.5 MG, QHS
     Route: 048
  4. SKELAXIN [Concomitant]
     Indication: MUSCLE SPASMS
     Dosage: BID PRN
  5. RELPAX [Concomitant]
     Indication: MIGRAINE
     Dosage: 40 MG, PRN
     Route: 048

REACTIONS (4)
  - DRUG INEFFECTIVE [None]
  - DYSPHAGIA [None]
  - MUSCULAR WEAKNESS [None]
  - PAIN [None]
